FAERS Safety Report 13053594 (Version 1)
Quarter: 2016Q4

REPORT INFORMATION
  Report Type: Spontaneous
  Country: TR (occurrence: TR)
  Receive Date: 20161222
  Receipt Date: 20161222
  Transmission Date: 20170207
  Serious: Yes (Hospitalization)
  Sender: FDA-Public Use
  Company Number: TR-TAKEDA-2016TUS023012

PATIENT
  Sex: Male

DRUGS (2)
  1. CIALIS [Interacting]
     Active Substance: TADALAFIL
     Indication: LOSS OF LIBIDO
     Dosage: UNK
     Route: 048
  2. BRINTELLIX [Suspect]
     Active Substance: VORTIOXETINE HYDROBROMIDE
     Indication: DEPRESSION
     Dosage: 10 MG, QD
     Route: 048

REACTIONS (4)
  - Drug interaction [Unknown]
  - Dizziness [Recovered/Resolved]
  - Abnormal faeces [Not Recovered/Not Resolved]
  - Weight increased [Not Recovered/Not Resolved]
